FAERS Safety Report 10917621 (Version 1)
Quarter: 2015Q1

REPORT INFORMATION
  Report Type: Spontaneous
  Country: IT (occurrence: None)
  Receive Date: 20150311
  Receipt Date: 20150311
  Transmission Date: 20150721
  Serious: Yes (Other)
  Sender: FDA-Public Use
  Company Number: FK201501161

PATIENT
  Age: 56 Year
  Sex: Male

DRUGS (1)
  1. PROPOFOL FRESENIUS (NOT SPECIFIED) (PROPOFOL) (PROPOFOL) [Suspect]
     Active Substance: PROPOFOL
     Indication: SEDATION
     Dosage: (NOT OTHERWISE SPECIFIED)
     Route: 042
     Dates: start: 20150203, end: 20150217

REACTIONS (1)
  - Post-injection delirium sedation syndrome [None]

NARRATIVE: CASE EVENT DATE: 20150217
